FAERS Safety Report 12366965 (Version 1)
Quarter: 2016Q2

REPORT INFORMATION
  Report Type: Spontaneous
  Country: US (occurrence: US)
  Receive Date: 20160513
  Receipt Date: 20160513
  Transmission Date: 20160815
  Serious: No
  Sender: FDA-Public Use
  Company Number: US-HORIZON-PEN-0216-2016

PATIENT
  Age: 67 Year
  Sex: Female

DRUGS (6)
  1. PENNSAID [Suspect]
     Active Substance: DICLOFENAC SODIUM
     Indication: BACK PAIN
     Dosage: APPLIED ON ONE KNEE AND BACK AT 10:30 PM, 1 SAMPLE PACKET/DAY ONLY AT NIGHT
  2. LEXAPRO [Concomitant]
     Active Substance: ESCITALOPRAM OXALATE
     Indication: DEPRESSION
  3. ESTRACE [Concomitant]
     Active Substance: ESTRADIOL
  4. NORVASC [Concomitant]
     Active Substance: AMLODIPINE BESYLATE
  5. REMERON [Concomitant]
     Active Substance: MIRTAZAPINE
     Dosage: 45 MG IN THE EVENING
  6. VICODIN [Concomitant]
     Active Substance: ACETAMINOPHEN\HYDROCODONE BITARTRATE
     Indication: PAIN

REACTIONS (2)
  - Off label use [Unknown]
  - Therapy cessation [Unknown]

NARRATIVE: CASE EVENT DATE: 201605
